FAERS Safety Report 8494455-3 (Version None)
Quarter: 2012Q3

REPORT INFORMATION
  Report Type: 
  Country: None (occurrence: None)
  Receive Date: 20120709
  Receipt Date: 20120625
  Transmission Date: 20120928
  Serious: No
  Sender: FDA-Public Use
  Company Number: US-JNJFOC-20120612897

PATIENT
  Age: 54 Year
  Sex: Female
  Weight: 56.7 kg

DRUGS (3)
  1. FENTANYL [Suspect]
     Indication: CANCER PAIN
     Route: 062
     Dates: start: 20120618
  2. DURAGESIC-100 [Suspect]
     Indication: CANCER PAIN
     Route: 062
     Dates: start: 20120618
  3. DILAUDID [Concomitant]
     Indication: CANCER PAIN
     Route: 065

REACTIONS (4)
  - HYPERTENSION [None]
  - DRUG ADMINISTERED AT INAPPROPRIATE SITE [None]
  - WITHDRAWAL SYNDROME [None]
  - PAIN [None]
